FAERS Safety Report 12209117 (Version 5)
Quarter: 2016Q2

REPORT INFORMATION
  Report Type: Spontaneous
  Country: US (occurrence: US)
  Receive Date: 20160324
  Receipt Date: 20160421
  Transmission Date: 20160815
  Serious: Yes (Death, Other)
  Sender: FDA-Public Use
  Company Number: US-TEVA-646507USA

PATIENT
  Age: 44 Year
  Sex: Female

DRUGS (7)
  1. CITALOPRAM [Suspect]
     Active Substance: CITALOPRAM HYDROBROMIDE
     Indication: DEPRESSION
     Dates: start: 201101
  2. CAFFEINE. [Concomitant]
     Active Substance: CAFFEINE
  3. MOBIC [Suspect]
     Active Substance: MELOXICAM
     Indication: MIGRAINE
     Route: 065
     Dates: end: 201105
  4. NADOLOL. [Concomitant]
     Active Substance: NADOLOL
     Indication: HYPERTENSION
  5. DIVALPROEX [Suspect]
     Active Substance: DIVALPROEX SODIUM
     Indication: MIGRAINE
     Dates: start: 201101
  6. IBUPROFEN. [Concomitant]
     Active Substance: IBUPROFEN
  7. ETHANOL [Concomitant]
     Active Substance: ALCOHOL

REACTIONS (5)
  - Drug-induced liver injury [Unknown]
  - Toxicity to various agents [Unknown]
  - Arrhythmia [Fatal]
  - Ventricular arrhythmia [Fatal]
  - Long QT syndrome [Fatal]

NARRATIVE: CASE EVENT DATE: 201105
